APPROVED DRUG PRODUCT: BUTORPHANOL TARTRATE
Active Ingredient: BUTORPHANOL TARTRATE
Strength: 2MG/ML
Dosage Form/Route: INJECTABLE;INJECTION
Application: A078400 | Product #002 | TE Code: AP
Applicant: HIKMA FARMACEUTICA (PORTUGAL) SA
Approved: May 1, 2009 | RLD: No | RS: No | Type: RX